FAERS Safety Report 5075197-3 (Version None)
Quarter: 2006Q3

REPORT INFORMATION
  Report Type: 
  Country: None (occurrence: None)
  Receive Date: 20060714
  Receipt Date: 20060418
  Transmission Date: 20061208
  Serious: No
  Sender: FDA-Public Use
  Company Number: 2006SP001732

PATIENT
  Age: 53 Year
  Sex: Male
  Weight: 81.6475 kg

DRUGS (3)
  1. LUNESTA [Suspect]
     Indication: INSOMNIA
     Dosage: 3 MG; TIW; ORAL
     Route: 048
     Dates: start: 20060301, end: 20060401
  2. ENBREL [Concomitant]
  3. SYNTHROID [Concomitant]

REACTIONS (5)
  - BLOOD TESTOSTERONE INCREASED [None]
  - HEART RATE INCREASED [None]
  - HYPOTENSION [None]
  - HYPOTHERMIA [None]
  - PERIPHERAL COLDNESS [None]
